FAERS Safety Report 13781048 (Version 1)
Quarter: 2017Q3

REPORT INFORMATION
  Report Type: Spontaneous
  Country: US (occurrence: US)
  Receive Date: 20170722
  Receipt Date: 20170722
  Transmission Date: 20171127
  Serious: Yes (Other)
  Sender: FDA-Public Use
  Company Number: None

PATIENT
  Age: 43 Year
  Sex: Female
  Weight: 78.75 kg

DRUGS (4)
  1. EFFEXOR XR [Suspect]
     Active Substance: VENLAFAXINE HYDROCHLORIDE
     Indication: DEPRESSION
     Dosage: ?          OTHER STRENGTH:MG;?
     Route: 048
     Dates: start: 20131115, end: 20161231
  2. IBUPROFEN. [Concomitant]
     Active Substance: IBUPROFEN
  3. VITAMIN B12 [Concomitant]
     Active Substance: CYANOCOBALAMIN
  4. CARVEDILOL. [Concomitant]
     Active Substance: CARVEDILOL

REACTIONS (28)
  - Hyperhidrosis [None]
  - Dyspnoea [None]
  - Musculoskeletal stiffness [None]
  - Presyncope [None]
  - Cardiac flutter [None]
  - Pallor [None]
  - Atrial flutter [None]
  - Gait disturbance [None]
  - Hypoaesthesia [None]
  - Hypertension [None]
  - Palpitations [None]
  - Pulse abnormal [None]
  - Chest pain [None]
  - Crying [None]
  - Anxiety [None]
  - Weight increased [None]
  - Dysarthria [None]
  - Paraesthesia [None]
  - Mental status changes [None]
  - Nasopharyngitis [None]
  - Hypothyroidism [None]
  - Mania [None]
  - Asthenia [None]
  - Dysstasia [None]
  - Salivary hypersecretion [None]
  - Muscle twitching [None]
  - Heart rate irregular [None]
  - Paranoia [None]

NARRATIVE: CASE EVENT DATE: 20160910
